FAERS Safety Report 12853754 (Version 2)
Quarter: 2016Q4

REPORT INFORMATION
  Report Type: Spontaneous
  Country: US (occurrence: US)
  Receive Date: 20161017
  Receipt Date: 20161031
  Transmission Date: 20170207
  Serious: Yes (Hospitalization, Other)
  Sender: FDA-Public Use
  Company Number: US-RAPTOR-RAP-001188-2016

PATIENT
  Sex: Male

DRUGS (1)
  1. PROCYSBI DELAYED-RELEASE [Suspect]
     Active Substance: CYSTEAMINE BITARTRATE
     Indication: CYSTINOSIS
     Dosage: 750 MG, EVERY 12 HOURS
     Route: 048
     Dates: start: 201603

REACTIONS (2)
  - Ureteric operation [Unknown]
  - Kidney infection [Unknown]
